FAERS Safety Report 5470749-0 (Version None)
Quarter: 2007Q3

REPORT INFORMATION
  Report Type: 
  Country: None (occurrence: None)
  Receive Date: 20070928
  Receipt Date: 20070919
  Transmission Date: 20080115
  Serious: Yes (Hospitalization)
  Sender: FDA-Public Use
  Company Number: IT-AVENTIS-200718655GDDC

PATIENT
  Sex: Male

DRUGS (2)
  1. TAXOTERE [Suspect]
     Indication: GASTRIC CANCER
     Route: 042
     Dates: start: 20070813, end: 20070813
  2. CISPLATIN [Suspect]
     Indication: GASTRIC CANCER
     Dosage: DOSE: 135.75 MG
     Route: 042
     Dates: start: 20070813, end: 20070813

REACTIONS (9)
  - ANOREXIA [None]
  - ASTHENIA [None]
  - DEPRESSION [None]
  - HYPOTENSION [None]
  - LEUKOPENIA [None]
  - MUCOSAL INFLAMMATION [None]
  - NAUSEA [None]
  - NEUTROPENIA [None]
  - ORAL INTAKE REDUCED [None]
